FAERS Safety Report 25465327 (Version 2)
Quarter: 2025Q2

REPORT INFORMATION
  Report Type: Spontaneous
  Country: CA (occurrence: CA)
  Receive Date: 20250622
  Receipt Date: 20250630
  Transmission Date: 20250716
  Serious: Yes (Hospitalization)
  Sender: SANDOZ
  Company Number: CA-MLMSERVICE-20250604-PI532891-00270-1

PATIENT
  Age: 71 Year
  Sex: Male

DRUGS (4)
  1. PREDNISOLONE ACETATE [Suspect]
     Active Substance: PREDNISOLONE ACETATE
     Indication: Prophylaxis
     Dosage: EYE DROPS 4 TIMES DAILY
     Route: 061
  2. VANCOMYCIN [Suspect]
     Active Substance: VANCOMYCIN
     Indication: Prophylaxis
     Dosage: 14 MG/ML; EYE DROPS 4 TIMES DAILY
     Route: 061
  3. MOXIFLOXACIN [Concomitant]
     Active Substance: MOXIFLOXACIN
     Indication: Prophylaxis
     Dosage: EYE DROPS 4 TIMES DAILY
     Route: 061
  4. VALACYCLOVIR [Concomitant]
     Active Substance: VALACYCLOVIR HYDROCHLORIDE
     Indication: Prophylaxis
     Dosage: 500 MG, QD
     Route: 065

REACTIONS (3)
  - Keratitis fungal [Recovered/Resolved]
  - Device related infection [Recovered/Resolved]
  - Candida infection [Recovered/Resolved]
